FAERS Safety Report 20128672 (Version 2)
Quarter: 2024Q1

REPORT INFORMATION
  Report Type: Spontaneous
  Country: CA (occurrence: None)
  Receive Date: 20211130
  Receipt Date: 20240301
  Transmission Date: 20240410
  Serious: Yes (Other)
  Sender: FDA-Public Use
  Company Number: CA-ROCHE-2964928

PATIENT
  Sex: Female
  Weight: 50 kg

DRUGS (21)
  1. RITUXIMAB [Suspect]
     Active Substance: RITUXIMAB
     Indication: Systemic lupus erythematosus
     Route: 041
  2. RITUXIMAB [Suspect]
     Active Substance: RITUXIMAB
     Route: 041
  3. RITUXIMAB [Suspect]
     Active Substance: RITUXIMAB
     Route: 041
  4. MYCOPHENOLATE MOFETIL [Suspect]
     Active Substance: MYCOPHENOLATE MOFETIL
     Indication: Systemic lupus erythematosus
     Route: 065
  5. RUXIENCE [Suspect]
     Active Substance: RITUXIMAB-PVVR
     Indication: Product used for unknown indication
     Route: 042
  6. METHOTREXATE SODIUM [Suspect]
     Active Substance: METHOTREXATE SODIUM
     Indication: Systemic lupus erythematosus
     Route: 065
  7. ASPIRIN [Concomitant]
     Active Substance: ASPIRIN
  8. AMITRIPTYLINE [Concomitant]
     Active Substance: AMITRIPTYLINE
  9. AZATHIOPRINE [Concomitant]
     Active Substance: AZATHIOPRINE
  10. BIOTIN [Concomitant]
     Active Substance: BIOTIN
  11. ESCITALOPRAM [Concomitant]
     Active Substance: ESCITALOPRAM OXALATE
  12. HYDROXYCHLOROQUINE SULFATE [Concomitant]
     Active Substance: HYDROXYCHLOROQUINE SULFATE
  13. IRON [Concomitant]
     Active Substance: IRON
  14. LYSINE [Concomitant]
     Active Substance: LYSINE
  15. NAPROXEN [Concomitant]
     Active Substance: NAPROXEN
  16. DOCONEXENT\ICOSAPENT [Concomitant]
     Active Substance: DOCONEXENT\ICOSAPENT
  17. OMEPRAZOLE [Concomitant]
     Active Substance: OMEPRAZOLE
  18. PREDNISONE [Concomitant]
     Active Substance: PREDNISONE
  19. VITAMIN D3 [Concomitant]
     Active Substance: CHOLECALCIFEROL
  20. ZOPICLONE [Concomitant]
     Active Substance: ZOPICLONE
  21. CELEBREX [Concomitant]
     Active Substance: CELECOXIB

REACTIONS (12)
  - Alopecia [Unknown]
  - Cerebral disorder [Unknown]
  - Muscle atrophy [Unknown]
  - Pigmentation disorder [Unknown]
  - Rash [Unknown]
  - Asthenia [Unknown]
  - Dyspnoea [Unknown]
  - Heart rate increased [Unknown]
  - Inflammation [Unknown]
  - Livedo reticularis [Unknown]
  - Loss of personal independence in daily activities [Unknown]
  - Drug ineffective [Unknown]
